FAERS Safety Report 17585817 (Version 2)
Quarter: 2021Q2

REPORT INFORMATION
  Report Type: Report from Study
  Country: None (occurrence: US)
  Receive Date: 20200326
  Receipt Date: 20210421
  Transmission Date: 20210716
  Serious: Yes (Hospitalization)
  Sender: FDA-Public Use
  Company Number: US-ABBVIE-20K-163-3337323-00

PATIENT
  Sex: Female

DRUGS (1)
  1. LUPRON DEPOT?PED [Suspect]
     Active Substance: LEUPROLIDE ACETATE
     Indication: PRECOCIOUS PUBERTY
     Route: 065
     Dates: start: 20171129

REACTIONS (1)
  - Fracture [Recovering/Resolving]
